FAERS Safety Report 6895698-2 (Version None)
Quarter: 2010Q3

REPORT INFORMATION
  Report Type: 
  Country: None (occurrence: None)
  Receive Date: 20100802
  Receipt Date: 20100723
  Transmission Date: 20110219
  Serious: Yes (Hospitalization, Other)
  Sender: FDA-Public Use
  Company Number: US-SANOFI-AVENTIS-2010SA044188

PATIENT
  Sex: Female

DRUGS (3)
  1. LANTUS [Suspect]
  2. NOVOLOG [Suspect]
  3. BYETTA [Suspect]

REACTIONS (3)
  - CARDIAC FAILURE CONGESTIVE [None]
  - ILL-DEFINED DISORDER [None]
  - MYOCARDIAL INFARCTION [None]
